FAERS Safety Report 23468891 (Version 1)
Quarter: 2024Q1

REPORT INFORMATION
  Report Type: Spontaneous
  Country: US (occurrence: None)
  Receive Date: 20240201
  Receipt Date: 20240201
  Transmission Date: 20240410
  Serious: Yes (Hospitalization)
  Sender: FDA-Public Use
  Company Number: None

PATIENT
  Age: 59 Year
  Sex: Female

DRUGS (1)
  1. PAZOPANIB HYDROCHLORIDE [Suspect]
     Active Substance: PAZOPANIB HYDROCHLORIDE
     Indication: Endometrial cancer
     Dosage: FREQUENCY : DAILY;?
     Route: 048
     Dates: start: 202312

REACTIONS (1)
  - Emergency care [None]

NARRATIVE: CASE EVENT DATE: 20240103
